FAERS Safety Report 9628089 (Version 1)
Quarter: 2013Q4

REPORT INFORMATION
  Report Type: Spontaneous
  Country: BR (occurrence: BR)
  Receive Date: 20131017
  Receipt Date: 20131017
  Transmission Date: 20140711
  Serious: Yes (Other)
  Sender: FDA-Public Use
  Company Number: BR-AMGEN-BRASP2013072773

PATIENT
  Age: 48 Year
  Sex: Male
  Weight: 60 kg

DRUGS (5)
  1. ENBREL [Suspect]
     Indication: RHEUMATOID ARTHRITIS
     Dosage: 50 MG, ONCE WEEKLY
     Route: 058
     Dates: start: 201210
  2. DEFLAZACORT [Concomitant]
     Indication: PAIN
     Dosage: 6 MG, 1X/DAY
     Route: 065
  3. FOLIC ACID [Concomitant]
     Dosage: 5 MG, 2X/DAY
     Route: 065
  4. COLCHICINE [Concomitant]
     Indication: BLOOD URIC ACID
     Dosage: 0.5 MG, EVERY 12 HOURS
     Route: 065
  5. ALLOPURINOL [Concomitant]
     Indication: ARTHRITIS
     Dosage: 100 MG, 1X/DAY
     Route: 065

REACTIONS (3)
  - Thrombosis [Unknown]
  - Arthritis [Unknown]
  - Rash macular [Unknown]
